FAERS Safety Report 7491382-5 (Version None)
Quarter: 2011Q2

REPORT INFORMATION
  Report Type: 
  Country: None (occurrence: None)
  Receive Date: 20110519
  Receipt Date: 20110506
  Transmission Date: 20111010
  Serious: Yes (Hospitalization)
  Sender: FDA-Public Use
  Company Number: PHHY2011FR39878

PATIENT
  Sex: Male

DRUGS (11)
  1. TEGRETOL [Suspect]
     Dosage: 400 MG, QD
  2. ANTIHYPERTENSIVES [Concomitant]
  3. PAROXETINE HCL [Suspect]
     Dosage: 0.5 DF, QD
     Route: 048
     Dates: start: 20020101, end: 20100916
  4. FOLIC ACID [Concomitant]
     Dosage: UNK
     Dates: end: 20050101
  5. MILICAL [Concomitant]
     Dosage: UNK
     Dates: start: 20100801, end: 20100901
  6. FENOFIBRATE [Suspect]
     Dosage: 1 DF, QD
     Route: 048
     Dates: start: 20060401, end: 20100910
  7. PARKINANE [Concomitant]
  8. KEPPRA [Concomitant]
     Dosage: UNK
     Dates: end: 20090101
  9. TEGRETOL [Suspect]
     Dosage: 600 MG, DAILY
     Route: 048
     Dates: end: 20100916
  10. HALDOL [Concomitant]
  11. TERCIAN [Concomitant]

REACTIONS (17)
  - DYSPNOEA [None]
  - BLOOD LUTEINISING HORMONE INCREASED [None]
  - VENOUS THROMBOSIS LIMB [None]
  - ACUTE PULMONARY OEDEMA [None]
  - OXYGEN SATURATION DECREASED [None]
  - TRANSFERRIN DECREASED [None]
  - HYPOGAMMAGLOBULINAEMIA [None]
  - THROMBOCYTOPENIA [None]
  - BLOOD IRON DECREASED [None]
  - CARDIAC FAILURE [None]
  - GENERALISED OEDEMA [None]
  - WEIGHT INCREASED [None]
  - HYPERTENSION [None]
  - VITAMIN K DEFICIENCY [None]
  - PULMONARY ALVEOLAR HAEMORRHAGE [None]
  - BLOOD FOLLICLE STIMULATING HORMONE INCREASED [None]
  - HYPOALBUMINAEMIA [None]
